FAERS Safety Report 19506373 (Version 2)
Quarter: 2021Q3

REPORT INFORMATION
  Report Type: Spontaneous
  Country: DE (occurrence: DE)
  Receive Date: 20210708
  Receipt Date: 20210721
  Transmission Date: 20211014
  Serious: Yes (Hospitalization)
  Sender: FDA-Public Use
  Company Number: DE-ACCORD-231132

PATIENT
  Age: 80 Year
  Sex: Female
  Weight: 80 kg

DRUGS (13)
  1. SERTRALINE [Concomitant]
     Active Substance: SERTRALINE HYDROCHLORIDE
     Dosage: 100 MG, 1?0?0?0, TABLETS
     Route: 048
  2. MACROGOL/POTASSIUM CHLORIDE/SODIUM BICARBONATE/SODIUM CHLORIDE [Concomitant]
     Active Substance: POLYETHYLENE GLYCOL\POTASSIUM CHLORIDE\SODIUM BICARBONATE\SODIUM CHLORIDE
     Dosage: 1?1?1?0, SYRUP
     Route: 048
  3. APIXABAN [Concomitant]
     Active Substance: APIXABAN
     Dosage: 2.5 MG, 1?0?0?0, TABLETS
     Route: 048
  4. MAGNETRANS FORTE [Concomitant]
     Active Substance: MAGNESIUM OXIDE
     Dosage: 150 MG, 1?0?0?0, CAPSULES
     Route: 048
  5. QUILONUM RETARD [Concomitant]
     Active Substance: LITHIUM CARBONATE
     Dosage: 12.2 MG, 0.5?0?0?0, PROLONGED?RELEASE TABLETS
     Route: 048
  6. MEMANTINE HYDROCHLORIDE. [Concomitant]
     Active Substance: MEMANTINE HYDROCHLORIDE
     Dosage: 20 MG, 1?0?0?0, TABLETS
     Route: 048
  7. LEVOTHYROXINE. [Concomitant]
     Active Substance: LEVOTHYROXINE
     Dosage: 112 MICROGRAM, 1?0?0?0, TABLETS
     Route: 048
  8. AMLODIPINE [Concomitant]
     Active Substance: AMLODIPINE BESYLATE
     Dosage: 5 MG, 1?0?1?0, TABLETS
     Route: 048
  9. POTASSIUM VERLA [Concomitant]
     Dosage: 2157.3 / 5.4 MG / G, 1?1?0?0, SACHET
     Route: 048
  10. TORASEMIDE [Concomitant]
     Active Substance: TORSEMIDE
     Dosage: 20 MG, 2?0?0?0, TABLETS
     Route: 048
  11. ATORVASTATIN [Concomitant]
     Active Substance: ATORVASTATIN
     Dosage: 80 MG, 0?0?1?0, TABLETS
     Route: 048
  12. QUETIAPINE. [Suspect]
     Active Substance: QUETIAPINE
     Indication: PRODUCT USED FOR UNKNOWN INDICATION
     Dosage: 25 MG, 1?0?1?0, TABLETS
     Route: 048
  13. RAMIPRIL. [Concomitant]
     Active Substance: RAMIPRIL
     Dosage: 5 MG, 1?0?0?0, TABLETS
     Route: 048

REACTIONS (2)
  - Therapeutic drug monitoring analysis not performed [Unknown]
  - Depressed mood [Unknown]

NARRATIVE: CASE EVENT DATE: 20200618
